FAERS Safety Report 16407264 (Version 1)
Quarter: 2019Q2

REPORT INFORMATION
  Report Type: Report from Study
  Country: BR (occurrence: BR)
  Receive Date: 20190608
  Receipt Date: 20190608
  Transmission Date: 20190711
  Serious: Yes (Other)
  Sender: FDA-Public Use
  Company Number: BR-UCBSA-2019023274

PATIENT
  Age: 65 Year
  Sex: Female
  Weight: 74 kg

DRUGS (2)
  1. CERTOLIZUMAB PEGOL [Suspect]
     Active Substance: CERTOLIZUMAB PEGOL
     Indication: RHEUMATOID ARTHRITIS
     Dosage: 400 MILLIGRAM, EV 15 DAYS
     Route: 058
     Dates: start: 201803, end: 20190508
  2. MESACOL [MESALAZINE] [Suspect]
     Active Substance: MESALAMINE
     Dosage: 800 MILLIGRAM, 2X/DAY (BID)
     Dates: end: 20190511

REACTIONS (4)
  - Drug-induced liver injury [Not Recovered/Not Resolved]
  - Pyrexia [Recovered/Resolved]
  - Intestinal ulcer [Not Recovered/Not Resolved]
  - Pneumonia [Recovered/Resolved]
